FAERS Safety Report 9406895 (Version 2)
Quarter: 2013Q3

REPORT INFORMATION
  Report Type: Spontaneous
  Country: GB (occurrence: GB)
  Receive Date: 20130718
  Receipt Date: 20130916
  Transmission Date: 20140515
  Serious: Yes (Death)
  Sender: FDA-Public Use
  Company Number: PHFR2013GB004082

PATIENT
  Age: 31 Year
  Sex: Male
  Weight: 100 kg

DRUGS (6)
  1. CLOZARIL [Suspect]
     Indication: SCHIZOPHRENIA
     Dosage: UNK
     Route: 048
     Dates: start: 20090121
  2. CLOZARIL [Suspect]
     Dosage: 375 MG, DAILY
     Route: 048
     Dates: start: 2009
  3. WARFARIN [Concomitant]
     Route: 048
  4. ZOPICLONE [Concomitant]
     Dosage: 7.5 MG, UNK
     Route: 048
  5. DIAZEPAM [Concomitant]
     Dosage: 12 MG, UNK
     Route: 048
  6. METHADONE [Concomitant]
     Dosage: 45 MG, UNK
     Route: 048

REACTIONS (3)
  - Sudden death [Fatal]
  - White blood cell count increased [Unknown]
  - Neutrophil count increased [Recovered/Resolved]
